FAERS Safety Report 5978447-1 (Version None)
Quarter: 2008Q4

REPORT INFORMATION
  Report Type: 
  Country: None (occurrence: None)
  Receive Date: 20081126
  Receipt Date: 20081113
  Transmission Date: 20090506
  Serious: Yes (Hospitalization)
  Sender: FDA-Public Use
  Company Number: KV200800253

PATIENT
  Age: 53 Year
  Sex: Male
  Weight: 86.2 kg

DRUGS (3)
  1. MORPHINE SULFATE [Suspect]
     Indication: PAIN IN EXTREMITY
     Dosage: 2 TABS 15 MG, QD PRN, ORAL
     Route: 048
     Dates: start: 20070201, end: 20080601
  2. KADIAN [Concomitant]
  3. CARAFATE [Concomitant]

REACTIONS (13)
  - ABDOMINAL PAIN [None]
  - CONTUSION [None]
  - DIARRHOEA [None]
  - DISORIENTATION [None]
  - DIZZINESS [None]
  - FATIGUE [None]
  - HAEMATEMESIS [None]
  - NAUSEA [None]
  - OESOPHAGEAL DISORDER [None]
  - PAIN [None]
  - URINARY RETENTION [None]
  - VISION BLURRED [None]
  - VOMITING [None]
